FAERS Safety Report 8740274 (Version 2)
Quarter: 2013Q4

REPORT INFORMATION
  Report Type: Spontaneous
  Country: US (occurrence: US)
  Receive Date: 20120823
  Receipt Date: 20131101
  Transmission Date: 20140711
  Serious: No
  Sender: FDA-Public Use
  Company Number: US-009507513-1208USA002409

PATIENT
  Age: 79 Year
  Sex: Female

DRUGS (2)
  1. FOSAMAX [Suspect]
     Indication: OSTEOPOROSIS
     Dosage: 35 MG, QD
     Route: 048
     Dates: start: 1995, end: 1998
  2. CARDIZEM [Concomitant]
     Indication: BLOOD PRESSURE

REACTIONS (1)
  - Dyspepsia [Recovering/Resolving]
